FAERS Safety Report 18054562 (Version 1)
Quarter: 2020Q3

REPORT INFORMATION
  Report Type: Spontaneous
  Country: US (occurrence: US)
  Receive Date: 20200722
  Receipt Date: 20200722
  Transmission Date: 20201103
  Serious: Yes (Other)
  Sender: FDA-Public Use
  Company Number: US-PFIZER INC-2020277828

PATIENT

DRUGS (1)
  1. GABAPENTIN. [Suspect]
     Active Substance: GABAPENTIN
     Indication: NEURALGIA
     Dosage: UNK

REACTIONS (7)
  - Enlarged uvula [Unknown]
  - Oropharyngeal pain [Unknown]
  - Off label use [Unknown]
  - Drug effective for unapproved indication [Unknown]
  - Throat tightness [Unknown]
  - Product use in unapproved indication [Unknown]
  - Pharyngeal swelling [Unknown]
